FAERS Safety Report 15691388 (Version 2)
Quarter: 2019Q2

REPORT INFORMATION
  Report Type: Spontaneous
  Country: US (occurrence: US)
  Receive Date: 20181205
  Receipt Date: 20190419
  Transmission Date: 20190711
  Serious: No
  Sender: FDA-Public Use
  Company Number: US-SA-2018SA332873

PATIENT
  Sex: Female

DRUGS (1)
  1. AUBAGIO [Suspect]
     Active Substance: TERIFLUNOMIDE
     Indication: MULTIPLE SCLEROSIS
     Dosage: 14 MG, QD
     Route: 048
     Dates: start: 20180925

REACTIONS (4)
  - Burning sensation [Unknown]
  - Dizziness [Unknown]
  - Fall [Unknown]
  - Mobility decreased [Not Recovered/Not Resolved]
